FAERS Safety Report 12196810 (Version 1)
Quarter: 2016Q1

REPORT INFORMATION
  Report Type: Spontaneous
  Country: NL (occurrence: NL)
  Receive Date: 20160321
  Receipt Date: 20160321
  Transmission Date: 20160526
  Serious: Yes (Other)
  Sender: FDA-Public Use
  Company Number: CHPA2016NL003282

PATIENT
  Sex: Male

DRUGS (2)
  1. OTRIVIN [Suspect]
     Active Substance: XYLOMETAZOLINE
     Indication: NASOPHARYNGITIS
  2. OTRIVIN [Suspect]
     Active Substance: XYLOMETAZOLINE
     Indication: NASAL CONGESTION
     Dosage: UNK
     Route: 006
     Dates: start: 2006

REACTIONS (2)
  - Drug dependence [Unknown]
  - Incorrect drug administration duration [Unknown]

NARRATIVE: CASE EVENT DATE: 2006
